FAERS Safety Report 7506001-9 (Version None)
Quarter: 2011Q2

REPORT INFORMATION
  Report Type: 
  Country: None (occurrence: None)
  Receive Date: 20110526
  Receipt Date: 20110523
  Transmission Date: 20111010
  Serious: Yes (Life-Threatening, Other)
  Sender: FDA-Public Use
  Company Number: PHHY2011US36853

PATIENT
  Sex: Female

DRUGS (6)
  1. RECLAST [Suspect]
     Indication: OSTEOPOROSIS
     Route: 042
     Dates: start: 20100524
  2. CALCIUM WITH VITAMIN D [Concomitant]
  3. LIBRAX [Concomitant]
  4. NEXIUM [Concomitant]
     Route: 048
  5. TOPRAL [Concomitant]
     Route: 048
  6. LISINOPRIL [Concomitant]
     Route: 048

REACTIONS (2)
  - MYELODYSPLASTIC SYNDROME [None]
  - NEOPLASM MALIGNANT [None]
